FAERS Safety Report 21307821 (Version 1)
Quarter: 2022Q3

REPORT INFORMATION
  Report Type: Spontaneous
  Country: FR (occurrence: FR)
  Receive Date: 20220908
  Receipt Date: 20220908
  Transmission Date: 20221027
  Serious: Yes (Other)
  Sender: FDA-Public Use
  Company Number: FR-AMERICAN REGENT INC-2022002612

PATIENT
  Age: 77 Year
  Sex: Male
  Weight: 86 kg

DRUGS (4)
  1. VENOFER [Suspect]
     Active Substance: IRON SUCROSE
     Indication: Iron deficiency anaemia
     Dosage: 300 MILLIGRAM
     Route: 042
     Dates: start: 20220819, end: 20220819
  2. AMOXICILLIN [Concomitant]
     Active Substance: AMOXICILLIN
     Indication: Prostatitis
     Dosage: UNK
     Route: 065
     Dates: start: 20220801, end: 20220821
  3. BACTRIM [Concomitant]
     Active Substance: SULFAMETHOXAZOLE\TRIMETHOPRIM
     Indication: Prostatitis
     Dosage: UNK
     Route: 065
     Dates: start: 20220801, end: 20220821
  4. GABAPENTIN [Concomitant]
     Active Substance: GABAPENTIN
     Indication: Behaviour disorder
     Dosage: 100 MILLIGRAM THREE TIMES PER DAY
     Route: 065
     Dates: start: 20220818, end: 20220821

REACTIONS (1)
  - Rash erythematous [Unknown]

NARRATIVE: CASE EVENT DATE: 20220821
